FAERS Safety Report 24291787 (Version 1)
Quarter: 2024Q3

REPORT INFORMATION
  Report Type: Spontaneous
  Country: SE (occurrence: SE)
  Receive Date: 20240906
  Receipt Date: 20240906
  Transmission Date: 20241017
  Serious: Yes (Life-Threatening)
  Sender: MYLAN
  Company Number: SE-MYLANLABS-2024M1080381

PATIENT
  Age: 79 Year
  Sex: Male

DRUGS (3)
  1. PREDNISONE [Suspect]
     Active Substance: PREDNISONE
     Indication: Aplastic anaemia
     Dosage: 50 MILLIGRAM
     Route: 065
  2. ACALABRUTINIB [Concomitant]
     Active Substance: ACALABRUTINIB
     Indication: Mantle cell lymphoma
     Dosage: 100 MILLIGRAM, BID
     Route: 065
  3. RITUXIMAB [Concomitant]
     Active Substance: RITUXIMAB
     Indication: Mantle cell lymphoma
     Dosage: UNK, MONTHLY (4 WEEKS)
     Route: 065

REACTIONS (1)
  - Drug ineffective [Unknown]
